FAERS Safety Report 4517643-7 (Version None)
Quarter: 2004Q4

REPORT INFORMATION
  Report Type: 
  Country: None (occurrence: None)
  Receive Date: 20041130
  Receipt Date: 20041111
  Transmission Date: 20050328
  Serious: Yes (Hospitalization)
  Sender: FDA-Public Use
  Company Number: EWC041141420

PATIENT
  Age: 57 Year
  Sex: Male

DRUGS (3)
  1. ZYPREXA [Suspect]
     Indication: BIPOLAR I DISORDER
     Dosage: 20 MG/1 DAY
     Dates: start: 20000101
  2. ZYPREXA [Suspect]
     Indication: SCHIZOAFFECTIVE DISORDER
     Dosage: 20 MG/1 DAY
     Dates: start: 20000101
  3. STELAZINE [Concomitant]

REACTIONS (4)
  - FEELING ABNORMAL [None]
  - LEUKAEMIA [None]
  - PANCYTOPENIA [None]
  - PYREXIA [None]
